FAERS Safety Report 19179132 (Version 1)
Quarter: 2021Q2

REPORT INFORMATION
  Report Type: Spontaneous
  Country: US (occurrence: US)
  Receive Date: 20210424
  Receipt Date: 20210424
  Transmission Date: 20210717
  Serious: No
  Sender: FDA-Public Use
  Company Number: None

PATIENT
  Age: 81 Year
  Sex: Male

DRUGS (2)
  1. ABIRATERONE TAB 250MG [Suspect]
     Active Substance: ABIRATERONE
     Route: 048
     Dates: start: 202102
  2. TAMSULOSIN [Suspect]
     Active Substance: TAMSULOSIN

REACTIONS (1)
  - Loss of consciousness [None]

NARRATIVE: CASE EVENT DATE: 20210412
